FAERS Safety Report 6301764-2 (Version None)
Quarter: 2009Q3

REPORT INFORMATION
  Report Type: 
  Country: None (occurrence: None)
  Receive Date: 20090807
  Receipt Date: 20090804
  Transmission Date: 20100115
  Serious: Yes (Disabling)
  Sender: FDA-Public Use
  Company Number: US-MERCK-0906USA03363

PATIENT
  Age: 74 Year
  Sex: Female
  Weight: 56 kg

DRUGS (9)
  1. FOSAMAX [Suspect]
     Indication: OSTEOPOROSIS
     Route: 048
     Dates: start: 20060101, end: 20090101
  2. BACLOFEN [Concomitant]
     Indication: CEREBROVASCULAR ACCIDENT
     Route: 065
  3. COUMADIN [Concomitant]
     Indication: ATRIAL FIBRILLATION
     Route: 065
  4. SIMVASTATIN [Concomitant]
     Indication: HYPERLIPIDAEMIA
     Route: 065
  5. LEXAPRO [Concomitant]
     Indication: ANXIETY
     Route: 065
  6. LEXAPRO [Concomitant]
     Indication: DEPRESSION
     Route: 065
  7. ATENOLOL [Concomitant]
     Indication: HYPERTENSION
     Route: 065
  8. DIGOXIN [Concomitant]
     Indication: ATRIAL FIBRILLATION
     Route: 065
  9. NORPACE [Concomitant]
     Indication: ATRIAL FIBRILLATION
     Route: 065

REACTIONS (5)
  - ARTHRALGIA [None]
  - CEREBROVASCULAR ACCIDENT [None]
  - MUSCLE SPASMS [None]
  - MUSCULAR WEAKNESS [None]
  - MYALGIA [None]
